FAERS Safety Report 9666044 (Version 4)
Quarter: 2014Q1

REPORT INFORMATION
  Report Type: Spontaneous
  Country: US (occurrence: US)
  Receive Date: 20131104
  Receipt Date: 20140115
  Transmission Date: 20141002
  Serious: Yes (Other)
  Sender: FDA-Public Use
  Company Number: US-BIOGENIDEC-2013BI103924

PATIENT
  Age: 36 Year
  Sex: Male

DRUGS (2)
  1. TYSABRI [Suspect]
     Indication: MULTIPLE SCLEROSIS
     Route: 042
     Dates: start: 20110711, end: 20130729
  2. REBIF [Concomitant]

REACTIONS (3)
  - Convulsion [Unknown]
  - Subdural haematoma [Unknown]
  - Loss of consciousness [Recovered/Resolved]
